FAERS Safety Report 6789696-7 (Version None)
Quarter: 2010Q2

REPORT INFORMATION
  Report Type: 
  Country: None (occurrence: None)
  Receive Date: 20100624
  Receipt Date: 20100618
  Transmission Date: 20101027
  Serious: Yes (Death)
  Sender: FDA-Public Use
  Company Number: IT-CELGENEUS-083-21880-10061983

PATIENT
  Sex: Male

DRUGS (3)
  1. REVLIMID [Suspect]
     Indication: MYELOMA RECURRENCE
     Route: 048
     Dates: start: 20100517, end: 20100531
  2. REVLIMID [Suspect]
  3. SOLDESAM [Concomitant]
     Indication: MYELOMA RECURRENCE
     Route: 065

REACTIONS (1)
  - CARDIAC DISORDER [None]
